FAERS Safety Report 5073136-2 (Version None)
Quarter: 2006Q3

REPORT INFORMATION
  Report Type: 
  Country: None (occurrence: None)
  Receive Date: 20060711
  Receipt Date: 20060324
  Transmission Date: 20061208
  Serious: No
  Sender: FDA-Public Use
  Company Number: 2006S1000070

PATIENT
  Age: 29 Year
  Sex: Male
  Weight: 133 kg

DRUGS (4)
  1. CUBICIN [Suspect]
     Indication: OSTEOMYELITIS
     Dosage: 4 MG/KG;Q24H;IV
     Route: 042
     Dates: start: 20060308, end: 20060309
  2. VANCOMYCIN [Concomitant]
  3. RIFAMPIN [Concomitant]
  4. SULFAMETHOXAZOLE + TRIMETHOPRIM [Concomitant]

REACTIONS (8)
  - BLISTER [None]
  - EOSINOPHILIA [None]
  - ERYTHEMA [None]
  - HYPERSENSITIVITY [None]
  - OEDEMA PERIPHERAL [None]
  - PRURITUS [None]
  - RASH MACULO-PAPULAR [None]
  - SWELLING FACE [None]
